FAERS Safety Report 19198288 (Version 2)
Quarter: 2021Q2

REPORT INFORMATION
  Report Type: Spontaneous
  Country: US (occurrence: US)
  Receive Date: 20210430
  Receipt Date: 20210514
  Transmission Date: 20210717
  Serious: No
  Sender: FDA-Public Use
  Company Number: US-AMGEN-USASP2021064750

PATIENT
  Age: 32 Year
  Sex: Male

DRUGS (3)
  1. EMGALITY [Concomitant]
     Active Substance: GALCANEZUMAB-GNLM
     Indication: HEADACHE
     Dosage: UNK
     Route: 065
     Dates: start: 202103
  2. OTEZLA [Suspect]
     Active Substance: APREMILAST
     Dosage: UNK (DOSAGE INCREASES)
     Route: 048
  3. OTEZLA [Suspect]
     Active Substance: APREMILAST
     Indication: PRODUCT USED FOR UNKNOWN INDICATION
     Dosage: UNK
     Route: 048
     Dates: start: 202104

REACTIONS (1)
  - Tension headache [Not Recovered/Not Resolved]

NARRATIVE: CASE EVENT DATE: 202104
